FAERS Safety Report 18822241 (Version 1)
Quarter: 2021Q1

REPORT INFORMATION
  Report Type: Other
  Country: US (occurrence: US)
  Receive Date: 20210202
  Receipt Date: 20210202
  Transmission Date: 20210419
  Serious: No
  Sender: FDA-Public Use
  Company Number: US-ROCHE-2516153

PATIENT
  Age: 60 Year
  Sex: Female
  Weight: 51.3 kg

DRUGS (2)
  1. OCREVUS [Suspect]
     Active Substance: OCRELIZUMAB
     Indication: PRIMARY PROGRESSIVE MULTIPLE SCLEROSIS
     Dosage: INFUSED OVER 4 HOURS, DATE OF TREATMENT: 07/NOV/18, 21/NOV/2018, 27/NOV/2018, 11/DEC/2018, 03/JUL/20
     Route: 042
     Dates: start: 201812
  2. OCREVUS [Suspect]
     Active Substance: OCRELIZUMAB
     Route: 065

REACTIONS (3)
  - COVID-19 [Recovered/Resolved]
  - Osteoporosis [Not Recovered/Not Resolved]
  - Sinusitis [Not Recovered/Not Resolved]

NARRATIVE: CASE EVENT DATE: 201909
